FAERS Safety Report 17752961 (Version 1)
Quarter: 2020Q2

REPORT INFORMATION
  Report Type: Spontaneous
  Country: US (occurrence: US)
  Receive Date: 20200506
  Receipt Date: 20200506
  Transmission Date: 20200714
  Serious: No
  Sender: FDA-Public Use
  Company Number: US-ROCHE-2386926

PATIENT
  Sex: Male

DRUGS (14)
  1. STOOL SOFTENER (DOCUSATE) [Concomitant]
     Active Substance: DOCUSATE
  2. VITAMIN C [Concomitant]
     Active Substance: ASCORBIC ACID
  3. IMODIUM A-D [Concomitant]
     Active Substance: LOPERAMIDE HYDROCHLORIDE
  4. MELATONIN [Concomitant]
     Active Substance: MELATONIN
  5. ESBRIET [Suspect]
     Active Substance: PIRFENIDONE
     Indication: IDIOPATHIC PULMONARY FIBROSIS
     Dosage: ONGOING: YES 1 TABLET 3 TIMES DAILY  1 WEEK WITH MEALS
     Route: 048
     Dates: start: 20190516
  6. ASPIRIN. [Concomitant]
     Active Substance: ASPIRIN
  7. VITAMIN B1 [Concomitant]
     Active Substance: THIAMINE HYDROCHLORIDE
  8. FLECAINIDE [Concomitant]
     Active Substance: FLECAINIDE
  9. ESBRIET [Suspect]
     Active Substance: PIRFENIDONE
     Dosage: ONGOING: YES, 2 TABLET 3 TIMES DAILY  1 WEEK WITH MEALS
     Route: 048
     Dates: start: 20190516
  10. PEPCID [Concomitant]
     Active Substance: FAMOTIDINE
  11. ATENOLOL. [Concomitant]
     Active Substance: ATENOLOL
  12. CLARITIN-D NOS [Concomitant]
     Active Substance: LORATADINE\PSEUDOEPHEDRINE SULFATE
  13. CRESTOR [Concomitant]
     Active Substance: ROSUVASTATIN CALCIUM
  14. ESBRIET [Suspect]
     Active Substance: PIRFENIDONE
     Dosage: ONGOING: YES 3 TABLET 3 TIMES DAILY  1 WEEK WITH MEALS
     Route: 048
     Dates: start: 20190516

REACTIONS (5)
  - Fatigue [Not Recovered/Not Resolved]
  - Abnormal dreams [Not Recovered/Not Resolved]
  - Poor quality sleep [Not Recovered/Not Resolved]
  - Clubbing [Not Recovered/Not Resolved]
  - Weight decreased [Not Recovered/Not Resolved]
